FAERS Safety Report 9764187 (Version 2)
Quarter: 2014Q1

REPORT INFORMATION
  Report Type: Spontaneous
  Country: DE (occurrence: DE)
  Receive Date: 20131216
  Receipt Date: 20140128
  Transmission Date: 20141002
  Serious: Yes (Death, Life-Threatening)
  Sender: FDA-Public Use
  Company Number: DE-CELGENEUS-062-21660-13120430

PATIENT
  Age: 71 Year
  Sex: Female
  Weight: 87.8 kg

DRUGS (10)
  1. ABRAXANE [Suspect]
     Indication: BREAST CANCER
     Dosage: 100 MILLIGRAM/SQ. METER
     Route: 065
     Dates: start: 20131121, end: 20131121
  2. X-GEVA [Suspect]
     Indication: BREAST CANCER
     Route: 058
     Dates: start: 20110922
  3. X-GEVA [Suspect]
     Route: 058
     Dates: start: 20131121, end: 20131121
  4. AVASTIN [Suspect]
     Indication: BREAST CANCER
     Dosage: 15 MILLIGRAM/KILOGRAM
     Route: 065
     Dates: start: 20131121, end: 20131121
  5. NEULASTA [Concomitant]
     Indication: PROPHYLAXIS
     Route: 065
  6. EMEND [Concomitant]
     Indication: PREMEDICATION
     Route: 065
     Dates: start: 201311
  7. DEXAMETHASONE [Concomitant]
     Indication: PREMEDICATION
     Route: 065
     Dates: start: 201311
  8. KEVATRIL [Concomitant]
     Indication: PRODUCT USED FOR UNKNOWN INDICATION
     Route: 041
     Dates: start: 201311
  9. NACL [Concomitant]
     Indication: PRODUCT USED FOR UNKNOWN INDICATION
     Route: 041
     Dates: start: 201311
  10. LINOLA [Concomitant]
     Indication: PRURITUS
     Route: 061
     Dates: start: 20131125

REACTIONS (3)
  - Coma hepatic [Not Recovered/Not Resolved]
  - General physical health deterioration [Fatal]
  - Breast cancer metastatic [Fatal]
